FAERS Safety Report 9819594 (Version 2)
Quarter: 2014Q1

REPORT INFORMATION
  Report Type: Spontaneous
  Country: US (occurrence: US)
  Receive Date: 20140115
  Receipt Date: 20140115
  Transmission Date: 20141002
  Serious: Yes (Hospitalization)
  Sender: FDA-Public Use
  Company Number: US-B.I. PHARMACEUTICALS,INC./RIDGEFIELD-2013-BI-23016BP

PATIENT
  Sex: Female
  Weight: 68.04 kg

DRUGS (15)
  1. PRADAXA [Suspect]
     Dosage: 150 MG
     Route: 048
     Dates: start: 201104, end: 20110505
  2. SYNTHROID [Concomitant]
     Dosage: 100 MCG
  3. CELEBREX [Concomitant]
     Dosage: 200 MG
  4. COREG [Concomitant]
     Dosage: 50 MG
  5. VITAMIN D3 [Concomitant]
     Dosage: 2000 U
  6. LORTAB [Concomitant]
  7. VYTORIN [Concomitant]
  8. I-CAP [Concomitant]
  9. IRON [Concomitant]
     Dosage: 324 MG
  10. LASIX [Concomitant]
     Dosage: 40 MG
  11. MULTAQ [Concomitant]
     Dosage: 800 MG
  12. ZANTAC [Concomitant]
     Dosage: 300 MG
  13. DIGOXIN [Concomitant]
     Dosage: 62.5 MCG
  14. ATACAND [Concomitant]
     Dosage: 32 MG
  15. REQUIP [Concomitant]
     Dosage: 0.75 MG

REACTIONS (3)
  - Haemorrhagic anaemia [Unknown]
  - Atrial fibrillation [Unknown]
  - Haemorrhage [Unknown]
